FAERS Safety Report 18479802 (Version 1)
Quarter: 2020Q4

REPORT INFORMATION
  Report Type: Spontaneous
  Country: US (occurrence: US)
  Receive Date: 20201109
  Receipt Date: 20201109
  Transmission Date: 20210114
  Serious: Yes (Hospitalization)
  Sender: FDA-Public Use
  Company Number: US-ENDO PHARMACEUTICALS INC-2020-007074

PATIENT
  Age: 59 Year
  Sex: Male

DRUGS (1)
  1. HYDRALAZINE HYDROCHLORIDE. [Suspect]
     Active Substance: HYDRALAZINE HYDROCHLORIDE
     Indication: PRODUCT USED FOR UNKNOWN INDICATION
     Dosage: 100 MG, BID
     Route: 065

REACTIONS (4)
  - Vasculitis [Not Recovered/Not Resolved]
  - Pulmonary alveolar haemorrhage [Not Recovered/Not Resolved]
  - Acute respiratory distress syndrome [Not Recovered/Not Resolved]
  - Glomerulonephritis rapidly progressive [Not Recovered/Not Resolved]
